FAERS Safety Report 20436503 (Version 2)
Quarter: 2022Q2

REPORT INFORMATION
  Report Type: Report from Study
  Country: US (occurrence: None)
  Receive Date: 20220207
  Receipt Date: 20220414
  Transmission Date: 20220721
  Serious: Yes (Death, Hospitalization, Other)
  Sender: FDA-Public Use
  Company Number: US-ROCHE-2852418

PATIENT
  Age: 75 Year
  Sex: Male
  Weight: 54.4 kg

DRUGS (2)
  1. ATEZOLIZUMAB [Suspect]
     Active Substance: ATEZOLIZUMAB
     Indication: Bladder transitional cell carcinoma
     Dosage: ON 11/FEB2021, SHE RECEIVED THE MOST RECENT DOSE 1200 MG ONCE IN 3 WEEKS OF ATEZOLIZUMAB PRIOR TO SA
     Route: 041
     Dates: start: 20201210
  2. CIPROFLOXACIN [Concomitant]
     Active Substance: CIPROFLOXACIN

REACTIONS (4)
  - Small intestinal obstruction [Fatal]
  - Blood creatinine increased [Recovered/Resolved]
  - Large intestine perforation [Fatal]
  - Renal tubular necrosis [Unknown]

NARRATIVE: CASE EVENT DATE: 20210222
